FAERS Safety Report 5607617-7 (Version None)
Quarter: 2008Q1

REPORT INFORMATION
  Report Type: 
  Country: None (occurrence: None)
  Receive Date: 20080130
  Receipt Date: 20080125
  Transmission Date: 20080703
  Serious: Yes (Hospitalization, Disabling, Other)
  Sender: FDA-Public Use
  Company Number: PHEH2007US15623

PATIENT
  Age: 83 Year
  Sex: Male

DRUGS (10)
  1. EXELON [Suspect]
     Indication: DEMENTIA ALZHEIMER'S TYPE
     Dosage: 9.2 MG, BID
     Route: 062
     Dates: start: 20071114, end: 20071206
  2. EXELON [Suspect]
     Dosage: 4.6 MG/DAY, QD
     Route: 062
     Dates: start: 20070912, end: 20071113
  3. NAMENDA [Concomitant]
     Indication: DEMENTIA ALZHEIMER'S TYPE
  4. AMARYL [Concomitant]
  5. SIMVASTATIN [Concomitant]
  6. AGGRENOX [Concomitant]
  7. PROSCAR [Concomitant]
  8. VITAMIN B-12 [Concomitant]
  9. JANUVIA [Concomitant]
  10. EYE DROPS [Concomitant]

REACTIONS (14)
  - ABNORMAL BEHAVIOUR [None]
  - ACCIDENTAL OVERDOSE [None]
  - CEREBROVASCULAR ACCIDENT [None]
  - CONFUSIONAL STATE [None]
  - DELIRIUM [None]
  - DELUSION [None]
  - DEMENTIA [None]
  - DISORIENTATION [None]
  - DRUG ADMINISTRATION ERROR [None]
  - DRUG INTOLERANCE [None]
  - EXCORIATION [None]
  - FALL [None]
  - MEMORY IMPAIRMENT [None]
  - WALKING DISABILITY [None]
